FAERS Safety Report 13595701 (Version 1)
Quarter: 2017Q2

REPORT INFORMATION
  Report Type: Spontaneous
  Country: US (occurrence: US)
  Receive Date: 20170531
  Receipt Date: 20170531
  Transmission Date: 20170830
  Serious: No
  Sender: FDA-Public Use
  Company Number: US-JNJFOC-20170412377

PATIENT
  Age: 9 Decade
  Sex: Male

DRUGS (4)
  1. TYLENOL REGULAR STRENGTH [Suspect]
     Active Substance: ACETAMINOPHEN
     Indication: SLEEP DISORDER THERAPY
     Dosage: 1-2 (UNSPECIFIED), 1-2 X PER DAY
     Route: 048
  2. TYLENOL REGULAR STRENGTH [Suspect]
     Active Substance: ACETAMINOPHEN
     Indication: PAIN
     Dosage: 1-2 (UNSPECIFIED), 1-2 X PER DAY
     Route: 048
  3. WARFARIN [Concomitant]
     Active Substance: WARFARIN
     Indication: ANTICOAGULANT THERAPY
     Dosage: 3 DAYS A WEEK
     Route: 065
  4. WARFARIN [Concomitant]
     Active Substance: WARFARIN
     Indication: ANTICOAGULANT THERAPY
     Dosage: 4 DAYS A WEEK
     Route: 065

REACTIONS (3)
  - Somnolence [Recovered/Resolved]
  - Drug administration error [Unknown]
  - Product use in unapproved indication [Recovered/Resolved]
